FAERS Safety Report 6746162-2 (Version None)
Quarter: 2010Q2

REPORT INFORMATION
  Report Type: 
  Country: None (occurrence: None)
  Receive Date: 20100528
  Receipt Date: 20091105
  Transmission Date: 20101027
  Serious: No
  Sender: FDA-Public Use
  Company Number: US-ASTRAZENECA-2009SE25745

PATIENT
  Age: 56 Year
  Sex: Female

DRUGS (4)
  1. PRILOSEC [Suspect]
     Route: 048
  2. PRILOSEC OTC [Suspect]
     Dosage: TWO PILLS TWICE DAILY
     Route: 048
     Dates: start: 20080101
  3. RANITIDINE [Suspect]
  4. PLAVIX [Concomitant]
     Indication: STENT PLACEMENT

REACTIONS (8)
  - BURNING SENSATION [None]
  - CONTUSION [None]
  - EPISTAXIS [None]
  - GINGIVAL BLEEDING [None]
  - PAIN OF SKIN [None]
  - SCAB [None]
  - SKIN HAEMORRHAGE [None]
  - SUBCUTANEOUS NODULE [None]
